FAERS Safety Report 6305484-X (Version None)
Quarter: 2009Q3

REPORT INFORMATION
  Report Type: 
  Country: None (occurrence: None)
  Receive Date: 20090811
  Receipt Date: 20090805
  Transmission Date: 20100115
  Serious: Yes (Other)
  Sender: FDA-Public Use
  Company Number: US-JNJCH-2009016997

PATIENT
  Age: 67 Year
  Sex: Male
  Weight: 59 kg

DRUGS (4)
  1. ZYRTEC-D 12 HOUR [Suspect]
     Indication: HYPERSENSITIVITY
     Dosage: TEXT:ONE TABLET ONCE AT BREAKFAST
     Route: 048
  2. AVONEX [Concomitant]
     Indication: MULTIPLE SCLEROSIS
     Dosage: TEXT:UNSPECIFIED ONE A WEEK
     Route: 065
  3. COREG [Concomitant]
     Indication: CARDIAC DISORDER
     Dosage: TEXT:ONE TWICE A DAY
     Route: 065
  4. FLOMAX [Concomitant]
     Indication: PROSTATOMEGALY
     Dosage: TEXT:.04MG DAILY
     Route: 065

REACTIONS (2)
  - COELIAC DISEASE [None]
  - WRONG DRUG ADMINISTERED [None]
